FAERS Safety Report 6847704-9 (Version None)
Quarter: 2010Q3

REPORT INFORMATION
  Report Type: 
  Country: None (occurrence: None)
  Receive Date: 20100716
  Receipt Date: 20100707
  Transmission Date: 20110219
  Serious: Yes (Other)
  Sender: FDA-Public Use
  Company Number: US-PFIZER INC-2006015624

PATIENT
  Sex: Male
  Weight: 118 kg

DRUGS (13)
  1. LIPITOR [Suspect]
     Indication: BLOOD CHOLESTEROL INCREASED
     Dosage: 5 MG DAILY
     Route: 048
  2. LIPITOR [Suspect]
     Dosage: 10 MG DAILY
     Route: 048
  3. LIPITOR [Suspect]
     Dosage: 20MG DAILY
     Route: 048
  4. LIPITOR [Suspect]
     Dosage: 40 MG, 1X/DAY
     Route: 048
  5. CADUET [Suspect]
     Indication: BLOOD CHOLESTEROL INCREASED
     Dosage: [AMLODIPINE 10MG]/[ATORVASTATIN 20MG], DAILY
     Route: 048
  6. HYDROCHLOROTHIAZIDE [Suspect]
     Indication: HYPERTENSION
     Dosage: 25 MG, 1X/DAY
     Route: 048
  7. PLAVIX [Suspect]
     Indication: BLOOD CHOLESTEROL INCREASED
     Dosage: 75 MG, 1X/DAY
     Route: 048
  8. ATENOLOL [Concomitant]
     Indication: HYPERTENSION
     Dosage: 100 MG, 1X/DAY
     Route: 048
  9. NORVASC [Concomitant]
     Route: 065
  10. PROSCAR [Concomitant]
     Route: 065
  11. XALATAN [Concomitant]
     Route: 065
  12. ZETIA [Concomitant]
     Indication: HYPERTENSION
     Dosage: 10 MG, 1X/DAY
     Route: 048
  13. ACETYLSALICYLIC ACID [Concomitant]
     Indication: ANTICOAGULANT THERAPY
     Dosage: 81 MG, 1X/DAY
     Route: 048

REACTIONS (12)
  - ABDOMINAL DISTENSION [None]
  - ANKLE OPERATION [None]
  - BLOOD POTASSIUM DECREASED [None]
  - FALL [None]
  - GAIT DISTURBANCE [None]
  - HIP ARTHROPLASTY [None]
  - LOW DENSITY LIPOPROTEIN INCREASED [None]
  - MUSCULAR WEAKNESS [None]
  - PERONEAL NERVE PALSY [None]
  - SPINAL OPERATION [None]
  - SURGERY [None]
  - WEIGHT INCREASED [None]
